FAERS Safety Report 7467159-3 (Version None)
Quarter: 2011Q2

REPORT INFORMATION
  Report Type: 
  Country: None (occurrence: None)
  Receive Date: 20110509
  Receipt Date: 20110503
  Transmission Date: 20111010
  Serious: Yes (Life-Threatening, Hospitalization)
  Sender: FDA-Public Use
  Company Number: HU-WATSON-2011-06184

PATIENT
  Age: 18 Year
  Sex: Male

DRUGS (3)
  1. CLONAZEPAM [Suspect]
     Indication: TIC
     Route: 048
  2. TIAPRIDE [Suspect]
     Indication: TIC
     Route: 065
  3. HALOPERIDOL [Suspect]
     Indication: TIC
     Route: 048

REACTIONS (1)
  - TIC [None]
